FAERS Safety Report 9470360 (Version 1)
Quarter: 2013Q3

REPORT INFORMATION
  Report Type: Spontaneous
  Country: US (occurrence: US)
  Receive Date: 20130822
  Receipt Date: 20130822
  Transmission Date: 20140515
  Serious: No
  Sender: FDA-Public Use
  Company Number: US-SANOFI-AVENTIS-2013SA003243

PATIENT
  Age: 77 Year
  Sex: Female

DRUGS (3)
  1. MULTAQ [Suspect]
     Indication: ATRIAL FIBRILLATION
     Route: 048
  2. SYNTHROID [Concomitant]
  3. BENICAR [Concomitant]

REACTIONS (1)
  - Feeling abnormal [Unknown]
